FAERS Safety Report 9058386 (Version 1)
Quarter: 2013Q1

REPORT INFORMATION
  Report Type: Spontaneous
  Country: US (occurrence: None)
  Receive Date: 20130118
  Receipt Date: 20130118
  Transmission Date: 20140127
  Serious: Yes (Death)
  Sender: FDA-Public Use
  Company Number: 2013SP000294

PATIENT
  Age: 43 Year
  Sex: Female

DRUGS (4)
  1. HALOPERIDOL DECANOATE [Suspect]
  2. AMITRIPTYLINE [Suspect]
  3. LISINOPRIL [Suspect]
  4. CITALOPRAM [Suspect]

REACTIONS (2)
  - Toxicity to various agents [None]
  - Completed suicide [None]
